FAERS Safety Report 14339104 (Version 13)
Quarter: 2018Q3

REPORT INFORMATION
  Report Type: Spontaneous
  Country: US (occurrence: US)
  Receive Date: 20171230
  Receipt Date: 20180928
  Transmission Date: 20181010
  Serious: Yes (Hospitalization)
  Sender: FDA-Public Use
  Company Number: US-ACTELION-A-NJ2017-164673

PATIENT
  Age: 37 Year
  Sex: Female
  Weight: 95.69 kg

DRUGS (8)
  1. AMLODIPINE [Concomitant]
     Active Substance: AMLODIPINE BESYLATE
  2. OPSUMIT [Suspect]
     Active Substance: MACITENTAN
     Indication: PULMONARY ARTERIAL HYPERTENSION
     Dosage: 10 MG, QD
     Route: 048
     Dates: start: 20171124
  3. REMODULIN [Concomitant]
     Active Substance: TREPROSTINIL
  4. WARFARIN [Concomitant]
     Active Substance: WARFARIN
  5. ATIVAN [Concomitant]
     Active Substance: LORAZEPAM
     Dosage: 0.5 MG, UNK
     Route: 042
  6. BUMEX [Concomitant]
     Active Substance: BUMETANIDE
     Dosage: 4 MG, QD
  7. ADCIRCA [Concomitant]
     Active Substance: TADALAFIL
  8. LETAIRIS [Concomitant]
     Active Substance: AMBRISENTAN
     Dosage: UNK
     Dates: start: 201206, end: 20171123

REACTIONS (22)
  - Abdominal pain [Recovered/Resolved]
  - Acute kidney injury [Unknown]
  - Asthenia [Unknown]
  - Device related infection [Recovered/Resolved]
  - Dyspnoea [Recovered/Resolved]
  - Catheter site discharge [Unknown]
  - Cardiac failure acute [Recovered/Resolved]
  - Dehydration [Recovered/Resolved]
  - Unevaluable event [Unknown]
  - Therapeutic response decreased [Unknown]
  - Pulmonary hypertension [Unknown]
  - Pyrexia [Unknown]
  - Acute sinusitis [Not Recovered/Not Resolved]
  - Chest pain [Unknown]
  - Right ventricular failure [Unknown]
  - Metapneumovirus infection [Unknown]
  - Nasopharyngitis [Unknown]
  - Diarrhoea [Unknown]
  - Vomiting [Recovered/Resolved]
  - Flushing [Unknown]
  - Hypophagia [Recovered/Resolved]
  - Nausea [Recovered/Resolved]

NARRATIVE: CASE EVENT DATE: 20171218
